FAERS Safety Report 4698673-1 (Version None)
Quarter: 2005Q2

REPORT INFORMATION
  Report Type: 
  Country: None (occurrence: None)
  Receive Date: 20050622
  Receipt Date: 20050613
  Transmission Date: 20051028
  Serious: Yes (Other)
  Sender: FDA-Public Use
  Company Number: 200511172BWH

PATIENT
  Age: 22 Year
  Sex: Male

DRUGS (1)
  1. CIPRO [Suspect]
     Indication: LOCALISED INFECTION

REACTIONS (3)
  - ABNORMAL BEHAVIOUR [None]
  - AGGRESSION [None]
  - PHYSICAL ASSAULT [None]
